FAERS Safety Report 26093805 (Version 2)
Quarter: 2025Q4

REPORT INFORMATION
  Report Type: Spontaneous
  Country: JP (occurrence: JP)
  Receive Date: 20251126
  Receipt Date: 20251201
  Transmission Date: 20260118
  Serious: Yes (Other)
  Sender: BAYER HEALTHCARE PHARMACEUTICALS INC.
  Company Number: JP-BAYER-2025A153691

PATIENT
  Age: 51 Year
  Sex: Male

DRUGS (2)
  1. NUBEQA [Suspect]
     Active Substance: DAROLUTAMIDE
  2. DOCETAXEL [Suspect]
     Active Substance: DOCETAXEL
     Dosage: 5 DOSES

REACTIONS (5)
  - Neuropathy peripheral [None]
  - Oedema peripheral [None]
  - Nail deformation [None]
  - Alopecia [None]
  - Arthralgia [None]
